FAERS Safety Report 8816900 (Version 1)
Quarter: 2012Q4

REPORT INFORMATION
  Report Type: Spontaneous
  Country: US (occurrence: None)
  Receive Date: 20121002
  Receipt Date: 20121002
  Transmission Date: 20130627
  Serious: Yes (Life-Threatening, Hospitalization)
  Sender: FDA-Public Use
  Company Number: None

PATIENT
  Age: 42 Year
  Sex: Female
  Weight: 63.5 kg

DRUGS (1)
  1. LYSTEDA [Suspect]
     Indication: MENORRHAGIA
     Dosage: 1300mg 3 times daily po
     Route: 048
     Dates: start: 20120926, end: 20120927

REACTIONS (7)
  - Dyspnoea [None]
  - Chest discomfort [None]
  - Heart rate increased [None]
  - Headache [None]
  - Urticaria [None]
  - Rash [None]
  - Pruritus [None]
